FAERS Safety Report 11812957 (Version 1)
Quarter: 2015Q4

REPORT INFORMATION
  Report Type: Spontaneous
  Country: US (occurrence: US)
  Receive Date: 20151209
  Receipt Date: 20151209
  Transmission Date: 20160305
  Serious: No
  Sender: FDA-Public Use
  Company Number: US-009507513-1512USA004672

PATIENT
  Sex: Female
  Weight: 51.7 kg

DRUGS (1)
  1. IMPLANON [Suspect]
     Active Substance: ETONOGESTREL
     Indication: CONTRACEPTION
     Dosage: ONE INSERTION/3 YEARS
     Route: 059
     Dates: start: 20140411

REACTIONS (1)
  - Implant site pain [Unknown]
